FAERS Safety Report 4454753-7 (Version None)
Quarter: 2004Q3

REPORT INFORMATION
  Report Type: 
  Country: None (occurrence: None)
  Receive Date: 20040920
  Receipt Date: 20040920
  Transmission Date: 20050211
  Serious: Yes (Hospitalization)
  Sender: FDA-Public Use
  Company Number: None

PATIENT
  Age: 62 Year
  Sex: Male
  Weight: 96.1626 kg

DRUGS (12)
  1. CLOZAPINE [Suspect]
     Indication: SCHIZOPHRENIA
     Dosage: SEE IMAGE
     Route: 048
     Dates: start: 20040407
  2. HALOPERIDOL [Suspect]
     Dosage: 20 MG/D
     Dates: start: 20040520, end: 20040531
  3. CLOZAPINE [Concomitant]
  4. MAGNESIUM HYDROXIDE (MILK OF MAGNESIA) [Concomitant]
  5. DOCUSATE/SENNA [Concomitant]
  6. LOVASTATIN [Concomitant]
  7. FERROUS SULFATE TAB [Concomitant]
  8. SORBITOL [Concomitant]
  9. ALBUTEROL [Concomitant]
  10. TERAZOSIN HCL [Concomitant]
  11. RANITIDINE [Concomitant]
  12. CLONAZEPAM [Concomitant]

REACTIONS (9)
  - BLOOD CREATINE PHOSPHOKINASE INCREASED [None]
  - CONFUSIONAL STATE [None]
  - CONSTIPATION [None]
  - ILEUS [None]
  - LIVER FUNCTION TEST ABNORMAL [None]
  - NEUROLEPTIC MALIGNANT SYNDROME [None]
  - OBSTRUCTION [None]
  - PNEUMONIA ASPIRATION [None]
  - URINARY TRACT INFECTION [None]
